FAERS Safety Report 6367690-8 (Version None)
Quarter: 2009Q3

REPORT INFORMATION
  Report Type: 
  Country: None (occurrence: None)
  Receive Date: 20090916
  Receipt Date: 20090910
  Transmission Date: 20100115
  Serious: Yes (Other)
  Sender: FDA-Public Use
  Company Number: CHPA2009US18394

PATIENT
  Age: 40 Year
  Sex: Male
  Weight: 151.9 kg

DRUGS (3)
  1. 4 WAY FAST ACTING NASAL SPRAY (NCH)(PHENYLEPHRINE) NASAL SPRAY [Suspect]
     Indication: NASAL DECONGESTION THERAPY
     Dosage: Q4H, NASAL
     Route: 045
     Dates: start: 20090801
  2. PSEUDOEPHEDRINE (PSEUDOEPHEDRINE) TABLET [Concomitant]
  3. IBUPROFEN [Concomitant]

REACTIONS (3)
  - DRUG DEPENDENCE [None]
  - INAPPROPRIATE SCHEDULE OF DRUG ADMINISTRATION [None]
  - INTENTIONAL DRUG MISUSE [None]
